FAERS Safety Report 11723630 (Version 3)
Quarter: 2015Q4

REPORT INFORMATION
  Report Type: Spontaneous
  Country: US (occurrence: US)
  Receive Date: 20151111
  Receipt Date: 20151124
  Transmission Date: 20160304
  Serious: No
  Sender: FDA-Public Use
  Company Number: US-HORIZON-DUE-0099-2015

PATIENT
  Age: 58 Year
  Sex: Male

DRUGS (1)
  1. DUEXIS [Suspect]
     Active Substance: FAMOTIDINE\IBUPROFEN
     Indication: ARTHRITIS
     Dosage: 1 TABLET THREE TIMES DAILY
     Route: 048
     Dates: start: 201506, end: 20151108

REACTIONS (1)
  - Hypertension [Recovering/Resolving]
